FAERS Safety Report 11341655 (Version 1)
Quarter: 2015Q3

REPORT INFORMATION
  Report Type: Spontaneous
  Country: US (occurrence: None)
  Receive Date: 20150629
  Receipt Date: 20150629
  Transmission Date: 20151125
  Serious: No
  Sender: FDA-Public Use
  Company Number: A-NJ2014-107927

PATIENT
  Age: 52 Year
  Sex: Female

DRUGS (10)
  1. METOPROLOL [Concomitant]
     Active Substance: METOPROLOL
  2. OMEPRAZOLE. [Concomitant]
     Active Substance: OMEPRAZOLE
  3. OPSUMIT [Suspect]
     Active Substance: MACITENTAN
     Indication: PRODUCT USED FOR UNKNOWN INDICATION
     Route: 048
     Dates: start: 20140728
  4. LASIX (FUROSEMDIE) [Concomitant]
  5. XARELTO [Concomitant]
     Active Substance: RIVAROXABAN
  6. CORDARONE (AMIODARONE HYDROCHLORIDE) [Concomitant]
  7. CIRUELAX [Concomitant]
  8. LOSARTAN. [Concomitant]
     Active Substance: LOSARTAN
  9. ALDACTONE [Concomitant]
     Active Substance: SPIRONOLACTONE
  10. RANITIDINE [Concomitant]
     Active Substance: RANITIDINE\RANITIDINE HYDROCHLORIDE

REACTIONS (1)
  - Productive cough [None]

NARRATIVE: CASE EVENT DATE: 20141102
